FAERS Safety Report 8806565 (Version 1)
Quarter: 2012Q4

REPORT INFORMATION
  Report Type: 
  Country: FR (occurrence: FR)
  Receive Date: 20120925
  Receipt Date: 20120925
  Transmission Date: 20130627
  Serious: Yes (Other)
  Sender: FDA-Public Use
  Company Number: FR-JNJFOC-20120907819

PATIENT
  Age: 41 Year
  Sex: Female

DRUGS (10)
  1. REMICADE [Suspect]
     Indication: SPONDYLOARTHROPATHY
     Route: 042
     Dates: start: 20120724, end: 20120724
  2. REMICADE [Suspect]
     Indication: SPONDYLOARTHROPATHY
     Route: 042
     Dates: start: 20120426
  3. REMICADE [Suspect]
     Indication: SPONDYLOARTHROPATHY
     Route: 042
     Dates: start: 20111014
  4. IXPRIM [Concomitant]
     Route: 065
  5. DOLIPRANE [Concomitant]
     Route: 065
  6. SPASFON [Concomitant]
     Route: 065
  7. OGAST [Concomitant]
     Route: 065
  8. TRANSIPEG [Concomitant]
     Route: 065
  9. EDUCTYL [Concomitant]
     Route: 065
  10. BI-PROFENID [Concomitant]
     Route: 065

REACTIONS (3)
  - Dermatitis bullous [Unknown]
  - Antinuclear antibody positive [Unknown]
  - DNA antibody positive [Unknown]
